FAERS Safety Report 10788678 (Version 1)
Quarter: 2015Q1

REPORT INFORMATION
  Report Type: Spontaneous
  Country: US (occurrence: US)
  Receive Date: 20150212
  Receipt Date: 20150212
  Transmission Date: 20150721
  Serious: Yes (Other)
  Sender: FDA-Public Use
  Company Number: US-ASTRAZENECA-2015SE12867

PATIENT
  Age: 89 Year
  Sex: Male
  Weight: 84.4 kg

DRUGS (9)
  1. SEROQUEL [Suspect]
     Active Substance: QUETIAPINE FUMARATE
     Indication: BIPOLAR DISORDER
     Dosage: AT NIGHT, SINCE 2004 OR 2005
     Route: 048
  2. SEROQUEL [Suspect]
     Active Substance: QUETIAPINE FUMARATE
     Indication: BIPOLAR DISORDER
     Dosage: GENERIC , 100 MG AT NIGHT
     Route: 048
     Dates: start: 2011, end: 20150204
  3. SEROQUEL [Suspect]
     Active Substance: QUETIAPINE FUMARATE
     Indication: BIPOLAR I DISORDER
     Dosage: GENERIC , 100 MG AT NIGHT
     Route: 048
     Dates: start: 2011, end: 20150204
  4. PROTONIX [Concomitant]
     Active Substance: PANTOPRAZOLE SODIUM
     Indication: GASTROOESOPHAGEAL REFLUX DISEASE
     Route: 048
  5. SEROQUEL [Suspect]
     Active Substance: QUETIAPINE FUMARATE
     Indication: BIPOLAR DISORDER
     Dosage: TWO TIMES A DAY SINCE 2004 OR 2005
     Route: 048
  6. SEROQUEL [Suspect]
     Active Substance: QUETIAPINE FUMARATE
     Indication: BIPOLAR I DISORDER
     Dosage: TWO TIMES A DAY SINCE 2004 OR 2005
     Route: 048
  7. SEROQUEL [Suspect]
     Active Substance: QUETIAPINE FUMARATE
     Indication: BIPOLAR I DISORDER
     Dosage: AT NIGHT, SINCE 2004 OR 2005
     Route: 048
  8. LOTION FOR FEET [Concomitant]
     Indication: DRY SKIN
     Route: 061
  9. NAMENDA [Concomitant]
     Active Substance: MEMANTINE HYDROCHLORIDE
     Indication: MEMORY IMPAIRMENT
     Route: 048

REACTIONS (5)
  - Prostate cancer [Unknown]
  - Osteoporosis [Unknown]
  - Dysarthria [Unknown]
  - Precancerous skin lesion [Unknown]
  - Osteopenia [Unknown]

NARRATIVE: CASE EVENT DATE: 2009
